FAERS Safety Report 4493868-4 (Version None)
Quarter: 2004Q4

REPORT INFORMATION
  Report Type: 
  Country: None (occurrence: None)
  Receive Date: 20041105
  Receipt Date: 20041028
  Transmission Date: 20050328
  Serious: Yes (Other)
  Sender: FDA-Public Use
  Company Number: US-JNJFOC-20041100101

PATIENT
  Sex: Female

DRUGS (1)
  1. RETEVASE [Suspect]
     Indication: PULMONARY EMBOLISM
     Route: 042

REACTIONS (3)
  - HYPERHIDROSIS [None]
  - HYPOTENSION [None]
  - INFUSION RELATED REACTION [None]
